FAERS Safety Report 13151534 (Version 3)
Quarter: 2017Q1

REPORT INFORMATION
  Report Type: Other
  Country: US (occurrence: US)
  Receive Date: 20170125
  Receipt Date: 20170320
  Transmission Date: 20170428
  Serious: Yes (Other)
  Sender: FDA-Public Use
  Company Number: US-ACORDA-ACO_132972_2017

PATIENT
  Age: 62 Year
  Sex: Female
  Weight: 48.07 kg

DRUGS (2)
  1. AMPYRA [Suspect]
     Active Substance: DALFAMPRIDINE
     Indication: MULTIPLE SCLEROSIS
     Dosage: 10 MG, BID
     Route: 048
     Dates: start: 2012
  2. TYSABRI [Suspect]
     Active Substance: NATALIZUMAB
     Indication: MULTIPLE SCLEROSIS
     Dosage: 300 MG/KG, MONTHLY
     Route: 042
     Dates: start: 201105

REACTIONS (4)
  - Paraesthesia [Unknown]
  - Hepatic enzyme increased [Unknown]
  - Non-alcoholic steatohepatitis [Unknown]
  - Rash [Unknown]

NARRATIVE: CASE EVENT DATE: 20160311
